FAERS Safety Report 7295897-4 (Version None)
Quarter: 2011Q1

REPORT INFORMATION
  Report Type: 
  Country: None (occurrence: None)
  Receive Date: 20110216
  Receipt Date: 20110122
  Transmission Date: 20110831
  Serious: No
  Sender: FDA-Public Use
  Company Number: US-B.I. PHARMACEUTICALS,INC./RIDGEFIELD-2011-BP-02371BP

PATIENT
  Sex: Male

DRUGS (9)
  1. VASOTEC [Concomitant]
     Indication: CARDIAC DISORDER
     Dosage: 10 MG
     Route: 048
  2. VITAMIN B-12 [Concomitant]
     Indication: CARDIAC DISORDER
     Dosage: 400 MG
     Route: 048
  3. TOPROL-XL [Concomitant]
     Indication: ATRIAL FIBRILLATION
     Dosage: 50 MG
     Route: 048
     Dates: start: 20080101
  4. FOLIC ACID [Concomitant]
     Indication: CARDIAC DISORDER
     Dosage: 400 MG
     Route: 048
  5. ZOCOR [Concomitant]
     Indication: PROPHYLAXIS
     Dosage: 20 MG
     Route: 048
  6. MAGNESIUM [Concomitant]
     Indication: CARDIAC DISORDER
     Dosage: 400 MG
     Route: 048
  7. PRADAXA [Suspect]
     Indication: ATRIAL FIBRILLATION
     Dosage: 300 MG
     Route: 048
     Dates: start: 20101201
  8. ASPIRIN [Concomitant]
     Indication: ANTICOAGULANT THERAPY
     Dosage: 81 MG
     Route: 048
  9. POTASSIUM [Concomitant]
     Indication: CARDIAC DISORDER
     Dosage: 400 MG
     Route: 048

REACTIONS (4)
  - PAIN IN EXTREMITY [None]
  - RASH [None]
  - FACIAL PAIN [None]
  - HAEMORRHAGE SUBEPIDERMAL [None]
